FAERS Safety Report 7855793-8 (Version None)
Quarter: 2011Q4

REPORT INFORMATION
  Report Type: 
  Country: None (occurrence: None)
  Receive Date: 20111026
  Receipt Date: 20111025
  Transmission Date: 20120403
  Serious: Yes (Hospitalization)
  Sender: FDA-Public Use
  Company Number: JP-ABBOTT-11P-087-0716196-00

PATIENT
  Sex: Female
  Weight: 33 kg

DRUGS (14)
  1. HUMIRA [Suspect]
     Dates: start: 20091117, end: 20110131
  2. METHOTREXATE [Concomitant]
     Dates: start: 20110425
  3. HUMIRA [Suspect]
     Dates: start: 20090105, end: 20091116
  4. CABERGOLINE [Concomitant]
     Indication: PARKINSON'S DISEASE
     Route: 048
  5. ENTACAPONE [Concomitant]
     Indication: PARKINSON'S DISEASE
     Route: 048
     Dates: start: 20091005
  6. PRAMIPEXOLE HYDROCHLORIDE HYDRATE [Concomitant]
     Indication: PARKINSON'S DISEASE
     Route: 048
     Dates: start: 20101122
  7. FOLIC ACID [Concomitant]
     Indication: RHEUMATOID ARTHRITIS
     Route: 048
     Dates: start: 20080310, end: 20110228
  8. HUMIRA [Suspect]
     Indication: RHEUMATOID ARTHRITIS
     Dates: start: 20081208, end: 20090104
  9. LEVODOPA/CARBIDOPA HYDRATE [Concomitant]
     Indication: PARKINSON'S DISEASE
     Route: 048
  10. CLONAZEPAM [Concomitant]
     Indication: PARKINSON'S DISEASE
     Route: 048
  11. DOMPERIDONE [Concomitant]
     Indication: PARKINSON'S DISEASE
     Route: 048
     Dates: start: 20060907
  12. TRIHEXYPHENIDYL HCL [Concomitant]
     Indication: PARKINSON'S DISEASE
     Route: 048
     Dates: start: 20070817
  13. METHOTREXATE [Concomitant]
     Indication: RHEUMATOID ARTHRITIS
     Route: 048
     Dates: start: 20080310, end: 20110228
  14. SELEGILINE HCL [Concomitant]
     Indication: PARKINSON'S DISEASE
     Route: 048
     Dates: start: 20060309

REACTIONS (2)
  - ORGANISING PNEUMONIA [None]
  - HYPOCOMPLEMENTAEMIA [None]
